FAERS Safety Report 11844501 (Version 1)
Quarter: 2015Q4

REPORT INFORMATION
  Report Type: Spontaneous
  Country: CA (occurrence: CA)
  Receive Date: 20151217
  Receipt Date: 20151217
  Transmission Date: 20160305
  Serious: Yes (Disabling)
  Sender: FDA-Public Use
  Company Number: CA-TEVA-619220ACC

PATIENT
  Sex: Female
  Weight: 72.19 kg

DRUGS (4)
  1. LETROZOLE. [Concomitant]
     Active Substance: LETROZOLE
  2. LOZIDE [Concomitant]
     Active Substance: INDAPAMIDE
  3. TAPAZOLE [Concomitant]
     Active Substance: METHIMAZOLE
  4. LOSARTAN. [Suspect]
     Active Substance: LOSARTAN
     Indication: HYPERTENSION
     Dosage: 100 MILLIGRAM DAILY;
     Route: 065

REACTIONS (2)
  - Choking sensation [Recovered/Resolved]
  - Product substitution issue [Recovered/Resolved]
